FAERS Safety Report 16153015 (Version 1)
Quarter: 2019Q2

REPORT INFORMATION
  Report Type: Spontaneous
  Country: US (occurrence: US)
  Receive Date: 20190403
  Receipt Date: 20190403
  Transmission Date: 20190711
  Serious: No
  Sender: FDA-Public Use
  Company Number: US-PRINSTON PHARMACEUTICAL INC.-2018PRN01242

PATIENT
  Sex: Female

DRUGS (2)
  1. VALSARTAN AND HYDROCHLOROTHIAZIDE [Suspect]
     Active Substance: HYDROCHLOROTHIAZIDE\VALSARTAN
     Indication: HYPERTENSION
     Dosage: 1 TABLETS, 1X/DAY
     Route: 048
     Dates: start: 20180718, end: 20180801
  2. VALSARTAN. [Suspect]
     Active Substance: VALSARTAN
     Indication: HYPERTENSION
     Dosage: 320 MG, 1X/DAY
     Route: 048
     Dates: start: 20180718, end: 20180801

REACTIONS (6)
  - Decreased appetite [Recovered/Resolved]
  - Gastric disorder [Recovered/Resolved]
  - Dysgeusia [Recovered/Resolved]
  - Asthenia [Recovered/Resolved]
  - Weight decreased [Recovered/Resolved]
  - Unevaluable event [Recovered/Resolved]

NARRATIVE: CASE EVENT DATE: 2018
